FAERS Safety Report 17148004 (Version 2)
Quarter: 2019Q4

REPORT INFORMATION
  Report Type: Spontaneous
  Country: BE (occurrence: BE)
  Receive Date: 20191212
  Receipt Date: 20191219
  Transmission Date: 20200122
  Serious: Yes (Death, Hospitalization)
  Sender: FDA-Public Use
  Company Number: BE-ELI_LILLY_AND_COMPANY-BE201912004800

PATIENT
  Age: 57 Year
  Sex: Female

DRUGS (1)
  1. OLUMIANT [Suspect]
     Active Substance: BARICITINIB
     Indication: RHEUMATOID ARTHRITIS
     Dosage: 4 MG, UNKNOWN
     Route: 065

REACTIONS (5)
  - Cough [Unknown]
  - Vomiting [Unknown]
  - Cardiac arrest [Fatal]
  - Electrocardiogram QT prolonged [Unknown]
  - Chest pain [Unknown]

NARRATIVE: CASE EVENT DATE: 20191111
